FAERS Safety Report 25319693 (Version 1)
Quarter: 2025Q2

REPORT INFORMATION
  Report Type: Spontaneous
  Country: CN (occurrence: CN)
  Receive Date: 20250515
  Receipt Date: 20250515
  Transmission Date: 20250716
  Serious: Yes (Other)
  Sender: BRACCO
  Company Number: CN-BRACCO-2025CN02987

PATIENT
  Age: 56 Year
  Sex: Male

DRUGS (1)
  1. IOMEPROL [Suspect]
     Active Substance: IOMEPROL
     Indication: Computerised tomogram heart
     Route: 042
     Dates: start: 20250409, end: 20250409

REACTIONS (5)
  - Blood pressure increased [Recovering/Resolving]
  - Epistaxis [Recovering/Resolving]
  - Tremor [Recovering/Resolving]
  - Rash [Recovering/Resolving]
  - Pruritus [Recovering/Resolving]

NARRATIVE: CASE EVENT DATE: 20250409
